FAERS Safety Report 17863331 (Version 1)
Quarter: 2020Q2

REPORT INFORMATION
  Report Type: Spontaneous
  Country: US (occurrence: US)
  Receive Date: 20200605
  Receipt Date: 20200605
  Transmission Date: 20200714
  Serious: Yes (Other)
  Sender: FDA-Public Use
  Company Number: US-CIPLA LTD.-2020US03773

PATIENT

DRUGS (2)
  1. DICLOFENAC [Suspect]
     Active Substance: DICLOFENAC
     Indication: BACK PAIN
  2. DICLOFENAC [Suspect]
     Active Substance: DICLOFENAC
     Indication: LIMB DISCOMFORT
     Dosage: UNK, 4-5 TIMES A DAY OR 2 TIMES OR 3 TIMES AT NIGHT AND DAY AND 1 TIME
     Route: 061
     Dates: start: 2020

REACTIONS (8)
  - Oesophageal food impaction [Unknown]
  - Abdominal pain upper [Unknown]
  - Flatulence [Unknown]
  - Diarrhoea [Unknown]
  - Off label use [Unknown]
  - Therapeutic product effect incomplete [Unknown]
  - Product use in unapproved indication [Unknown]
  - Inappropriate schedule of product administration [Unknown]

NARRATIVE: CASE EVENT DATE: 2020
